FAERS Safety Report 5097048-3 (Version None)
Quarter: 2006Q3

REPORT INFORMATION
  Report Type: 
  Country: None (occurrence: None)
  Receive Date: 20060901
  Receipt Date: 20060822
  Transmission Date: 20061208
  Serious: Yes (Other)
  Sender: FDA-Public Use
  Company Number: 2006102775

PATIENT
  Sex: Female

DRUGS (2)
  1. DEPO-PROVERA [Suspect]
     Indication: DRUG USE FOR UNKNOWN INDICATION
     Dosage: SEE IMAGE, INTRAMUSCULAR
     Route: 030
     Dates: start: 19960101, end: 19960101
  2. DEPO-PROVERA [Suspect]
     Indication: DRUG USE FOR UNKNOWN INDICATION
     Dosage: SEE IMAGE, INTRAMUSCULAR
     Route: 030
     Dates: start: 19990101, end: 19990101

REACTIONS (9)
  - ABORTION SPONTANEOUS [None]
  - AMENORRHOEA [None]
  - ANTEPARTUM HAEMORRHAGE [None]
  - CYST [None]
  - DRUG EXPOSURE BEFORE PREGNANCY [None]
  - DYSMENORRHOEA [None]
  - ENDOMETRIOSIS [None]
  - MENORRHAGIA [None]
  - PREGNANCY [None]
